FAERS Safety Report 7495754-4 (Version None)
Quarter: 2011Q2

REPORT INFORMATION
  Report Type: 
  Country: None (occurrence: None)
  Receive Date: 20110523
  Receipt Date: 20110509
  Transmission Date: 20111010
  Serious: Yes (Hospitalization, Other)
  Sender: FDA-Public Use
  Company Number: US-ELI_LILLY_AND_COMPANY-US200705004585

PATIENT
  Sex: Male

DRUGS (22)
  1. PROLIXIN DECANOATE [Concomitant]
     Dosage: 37.5 MG, EVERY TWO WEEKS
     Route: 030
     Dates: start: 20050101
  2. KLONOPIN [Concomitant]
     Dosage: 0.5 MG, AT BEDTIME
     Route: 048
  3. ZOCOR [Concomitant]
  4. ALBUTEROL [Concomitant]
  5. PROLIXIN DECANOATE [Concomitant]
     Dosage: 18.75 MG, EVERY TWO WEEKS
     Route: 030
     Dates: start: 20000101, end: 20010101
  6. ZOLOFT [Concomitant]
     Dosage: 25 MG, QD
     Dates: start: 19980101
  7. ZOLOFT [Concomitant]
     Dosage: 100 MG, QD
     Dates: start: 20000101, end: 20040101
  8. ZOLOFT [Concomitant]
     Dosage: 50 MG, QD
     Dates: start: 20040101, end: 20050101
  9. ZOLOFT [Concomitant]
     Dosage: 50 MG, QD
     Dates: start: 19990324
  10. ZOLOFT [Concomitant]
     Dosage: 50 MG, BID
     Dates: start: 20050101, end: 20060101
  11. VISTARIL [Concomitant]
     Dosage: 100 MG, AT BEDTIME
     Dates: end: 20070321
  12. RONDEC DM [Concomitant]
  13. XANAX [Concomitant]
  14. ZYPREXA [Suspect]
     Dosage: 20 MG, QD
     Dates: start: 19980505, end: 20070321
  15. VISTARIL [Concomitant]
     Dosage: 50 MG, QD
     Route: 048
     Dates: start: 20070101
  16. LISINOPRIL [Concomitant]
  17. ERYTHROMYCIN [Concomitant]
  18. ZYPREXA [Suspect]
     Dosage: 15 MG, QD
     Dates: end: 19980505
  19. PROLIXIN DECANOATE [Concomitant]
     Dosage: 25 MG, EVERY TWO WEEKS
     Route: 030
     Dates: start: 20020101, end: 20040101
  20. ZOLOFT [Concomitant]
     Dosage: 50 MG, TID
     Dates: start: 20060101
  21. KLONOPIN [Concomitant]
     Dosage: 0.5 MG, BID
     Dates: start: 20030101, end: 20050101
  22. KLONOPIN [Concomitant]
     Dosage: 0.5 MG, TID
     Dates: start: 20050101

REACTIONS (19)
  - DIABETES MELLITUS [None]
  - INCREASED APPETITE [None]
  - WHITE BLOOD CELL ANALYSIS INCREASED [None]
  - WEIGHT INCREASED [None]
  - WEIGHT DECREASED [None]
  - HYPERTENSION [None]
  - BLOOD BILIRUBIN ABNORMAL [None]
  - TOTAL CHOLESTEROL/HDL RATIO DECREASED [None]
  - BLOOD SODIUM DECREASED [None]
  - BLOOD ALKALINE PHOSPHATASE [None]
  - IMPAIRED HEALING [None]
  - ALANINE AMINOTRANSFERASE INCREASED [None]
  - HYPERGLYCAEMIC HYPEROSMOLAR NONKETOTIC SYNDROME [None]
  - MUMPS [None]
  - ERECTILE DYSFUNCTION [None]
  - DEPRESSION [None]
  - BLOOD TRIGLYCERIDES INCREASED [None]
  - LOW DENSITY LIPOPROTEIN INCREASED [None]
  - VERY LOW DENSITY LIPOPROTEIN INCREASED [None]
